FAERS Safety Report 9791353 (Version 3)
Quarter: 2014Q1

REPORT INFORMATION
  Report Type: Spontaneous
  Country: US (occurrence: US)
  Receive Date: 20140101
  Receipt Date: 20140204
  Transmission Date: 20141002
  Serious: Yes (Life-Threatening, Disabling, Other)
  Sender: FDA-Public Use
  Company Number: US-ROCHE-1326230

PATIENT
  Age: 71 Year
  Sex: Female

DRUGS (2)
  1. ERIVEDGE [Suspect]
     Indication: BASAL CELL CARCINOMA
     Route: 048
     Dates: start: 20131028, end: 20131128
  2. SYNTHROID [Concomitant]
     Indication: HYPOTHYROIDISM
     Route: 048
     Dates: start: 1995

REACTIONS (3)
  - Hepatitis cholestatic [Not Recovered/Not Resolved]
  - Cholestasis [Unknown]
  - Blood bilirubin abnormal [Unknown]
